FAERS Safety Report 5912502-7 (Version None)
Quarter: 2008Q4

REPORT INFORMATION
  Report Type: 
  Country: None (occurrence: None)
  Receive Date: 20081007
  Receipt Date: 20081007
  Transmission Date: 20090506
  Serious: Yes (Other)
  Sender: FDA-Public Use
  Company Number: None

PATIENT
  Age: 28 Year
  Sex: Female
  Weight: 63.5036 kg

DRUGS (2)
  1. CIPRO [Suspect]
     Indication: FOREIGN TRAVEL
     Dosage: DAILY PO
     Route: 048
     Dates: start: 20080203, end: 20080206
  2. CIPRO [Suspect]
     Indication: FOREIGN TRAVEL
     Dosage: DAILY PO
     Route: 048
     Dates: start: 20080414, end: 20080419

REACTIONS (5)
  - DYSSTASIA [None]
  - EXERCISE ADEQUATE [None]
  - PAIN [None]
  - TENDON INJURY [None]
  - TENDONITIS [None]
